FAERS Safety Report 16325461 (Version 1)
Quarter: 2019Q2

REPORT INFORMATION
  Report Type: Spontaneous
  Country: CN (occurrence: CN)
  Receive Date: 20190517
  Receipt Date: 20190517
  Transmission Date: 20190711
  Serious: Yes (Hospitalization, Other)
  Sender: FDA-Public Use
  Company Number: CN-PFIZER INC-2019207729

PATIENT
  Age: 56 Year
  Sex: Female
  Weight: 52.6 kg

DRUGS (1)
  1. LIPITOR [Suspect]
     Active Substance: ATORVASTATIN CALCIUM
     Indication: CORONARY ARTERY DISEASE
     Dosage: 20.0 MG, 1X/DAY
     Route: 048
     Dates: start: 20190427, end: 20190430

REACTIONS (5)
  - Alanine aminotransferase increased [Recovering/Resolving]
  - Hepatic function abnormal [Recovering/Resolving]
  - Blood lactate dehydrogenase increased [Recovering/Resolving]
  - Aspartate aminotransferase increased [Recovering/Resolving]
  - Gamma-glutamyltransferase increased [Recovering/Resolving]

NARRATIVE: CASE EVENT DATE: 20190430
